FAERS Safety Report 7079822-7 (Version None)
Quarter: 2010Q4

REPORT INFORMATION
  Report Type: 
  Country: None (occurrence: None)
  Receive Date: 20101102
  Receipt Date: 20101025
  Transmission Date: 20110411
  Serious: Yes (Disabling)
  Sender: FDA-Public Use
  Company Number: BR-SANOFI-AVENTIS-2010SA065508

PATIENT
  Sex: Female
  Weight: 75 kg

DRUGS (7)
  1. LANTUS [Suspect]
     Route: 058
  2. OPTIPEN [Suspect]
  3. OMEPRAZOLE [Concomitant]
     Indication: GASTRIC DISORDER
  4. ALL OTHER THERAPEUTIC PRODUCTS [Concomitant]
  5. WARFARIN [Concomitant]
     Indication: ANTICOAGULANT THERAPY
  6. CARBIDOPA AND LEVODOPA [Concomitant]
     Indication: PARKINSON'S DISEASE
  7. ATACAND [Concomitant]
     Indication: HYPERTENSION

REACTIONS (3)
  - CONDITION AGGRAVATED [None]
  - PAIN IN EXTREMITY [None]
  - SCOLIOSIS [None]
